FAERS Safety Report 18766846 (Version 1)
Quarter: 2021Q1

REPORT INFORMATION
  Report Type: Spontaneous
  Country: US (occurrence: US)
  Receive Date: 20210120
  Receipt Date: 20210120
  Transmission Date: 20210419
  Serious: No
  Sender: FDA-Public Use
  Company Number: None

PATIENT
  Age: 83 Year
  Sex: Male
  Weight: 121.27 kg

DRUGS (2)
  1. CARBAMAZEPINE. [Suspect]
     Active Substance: CARBAMAZEPINE
     Dates: start: 20201023, end: 20201116
  2. CARBAMAZEPINE. [Suspect]
     Active Substance: CARBAMAZEPINE
     Dates: start: 20201109, end: 20201116

REACTIONS (10)
  - Carbon dioxide increased [None]
  - Oxygen saturation decreased [None]
  - Blood creatinine decreased [None]
  - Hyponatraemia [None]
  - Alanine aminotransferase increased [None]
  - Blood chloride decreased [None]
  - Weight increased [None]
  - Blood sodium decreased [None]
  - Fluid retention [None]
  - Gamma-glutamyltransferase increased [None]

NARRATIVE: CASE EVENT DATE: 20201116
